FAERS Safety Report 7873685-5 (Version None)
Quarter: 2011Q4

REPORT INFORMATION
  Report Type: 
  Country: None (occurrence: None)
  Receive Date: 20111030
  Receipt Date: 20110509
  Transmission Date: 20120403
  Serious: No
  Sender: FDA-Public Use
  Company Number: US-AMGEN-USASP2011024149

PATIENT
  Age: 48 Year
  Sex: Female
  Weight: 78.02 kg

DRUGS (5)
  1. FOLIC ACID [Concomitant]
     Dosage: 400 A?G, UNK
  2. PROTONIX [Concomitant]
     Dosage: 20 MG, UNK
  3. ENBREL [Suspect]
     Indication: PRODUCT USED FOR UNKNOWN INDICATION
     Dosage: 1 ML, QWK
     Route: 058
  4. HYDROCHLOROTH [Concomitant]
     Dosage: 12.5 MG, UNK
  5. LEXAPRO [Concomitant]
     Dosage: 10 MG, UNK

REACTIONS (2)
  - HOT FLUSH [None]
  - NIGHT SWEATS [None]
